FAERS Safety Report 8859294 (Version 1)
Quarter: 2012Q4

REPORT INFORMATION
  Report Type: 
  Country: US (occurrence: US)
  Receive Date: 20121024
  Receipt Date: 20121024
  Transmission Date: 20130627
  Serious: No
  Sender: FDA-Public Use
  Company Number: US-ASTRAZENECA-2012SE20972

PATIENT
  Age: 69 Year
  Sex: Male
  Weight: 102.1 kg

DRUGS (3)
  1. METOPROLOL SUCCINATE [Suspect]
     Indication: ATRIAL FIBRILLATION
     Route: 048
  2. PRADAXA [Concomitant]
  3. LEVOTHYROXINE [Concomitant]
     Indication: THYROID DISORDER

REACTIONS (4)
  - Hypertension [Unknown]
  - Balance disorder [Unknown]
  - Dizziness [Unknown]
  - Off label use [Unknown]
